FAERS Safety Report 14814719 (Version 2)
Quarter: 2018Q2

REPORT INFORMATION
  Report Type: Spontaneous
  Country: US (occurrence: US)
  Receive Date: 20180426
  Receipt Date: 20180427
  Transmission Date: 20180711
  Serious: No
  Sender: FDA-Public Use
  Company Number: US-009507513-1804USA011136

PATIENT
  Age: 17 Year
  Sex: Female
  Weight: 77.1 kg

DRUGS (1)
  1. NEXPLANON [Suspect]
     Active Substance: ETONOGESTREL
     Indication: CONTRACEPTION
     Dosage: 1 DF (IMPLANT SITE: LEFT ARM)
     Route: 059
     Dates: start: 20160108

REACTIONS (4)
  - Pain in extremity [Not Recovered/Not Resolved]
  - Implant site pain [Not Recovered/Not Resolved]
  - Menstruation irregular [Not Recovered/Not Resolved]
  - Implant site bruising [Not Recovered/Not Resolved]

NARRATIVE: CASE EVENT DATE: 201709
